FAERS Safety Report 8884651 (Version 1)
Quarter: 2012Q4

REPORT INFORMATION
  Report Type: 
  Country: CH (occurrence: CH)
  Receive Date: 20121104
  Receipt Date: 20121104
  Transmission Date: 20130627
  Serious: Yes (Other)
  Sender: FDA-Public Use
  Company Number: PHHY2012CH098170

PATIENT
  Sex: Female

DRUGS (2)
  1. TASIGNA [Suspect]
     Indication: CHRONIC MYELOID LEUKAEMIA
     Dosage: 40 mg, BID
     Route: 048
     Dates: start: 20120210, end: 20120606
  2. ESOMEPRAZOLE [Concomitant]
     Dosage: 40 mg, QD
     Route: 048

REACTIONS (9)
  - Multiple sclerosis [Recovering/Resolving]
  - Paraparesis [Recovering/Resolving]
  - Gait disturbance [Unknown]
  - Muscular weakness [Unknown]
  - Fatigue [Unknown]
  - Central nervous system inflammation [Recovering/Resolving]
  - Pleocytosis [Recovering/Resolving]
  - Vertigo [Unknown]
  - Drug resistance [Unknown]
